FAERS Safety Report 4899932-X (Version None)
Quarter: 2006Q1

REPORT INFORMATION
  Report Type: 
  Country: None (occurrence: None)
  Receive Date: 20060203
  Receipt Date: 20060131
  Transmission Date: 20060701
  Serious: Yes (Hospitalization)
  Sender: FDA-Public Use
  Company Number: PHRM2006FR00655

PATIENT
  Age: 31 Year
  Sex: Female

DRUGS (5)
  1. LAMISIL [Suspect]
     Route: 048
     Dates: end: 20041101
  2. DEBRIDAT [Suspect]
     Route: 048
  3. GAVISCON [Suspect]
     Route: 048
  4. MOTILIUM [Suspect]
     Route: 048
  5. PARACETAMOL [Suspect]
     Route: 048

REACTIONS (4)
  - ABORTION SPONTANEOUS [None]
  - ANTEPARTUM HAEMORRHAGE [None]
  - DRUG EXPOSURE DURING PREGNANCY [None]
  - INTRA-UTERINE DEATH [None]
